FAERS Safety Report 11167204 (Version 3)
Quarter: 2016Q1

REPORT INFORMATION
  Report Type: Spontaneous
  Country: JP (occurrence: JP)
  Receive Date: 20150605
  Receipt Date: 20160211
  Transmission Date: 20160525
  Serious: Yes (Death, Other)
  Sender: FDA-Public Use
  Company Number: JP-009507513-1505JPN015517

PATIENT
  Age: 35 Year
  Sex: Female

DRUGS (2)
  1. HALCION [Concomitant]
     Active Substance: TRIAZOLAM
     Indication: INSOMNIA
     Dosage: 0.25 MG, QD, (5 TABLETS WERE ADMINISTERED BEFORE THE GOLDEN WEEK HOLIDAYS)
     Route: 048
     Dates: start: 201504, end: 2015
  2. BELSOMRA [Suspect]
     Active Substance: SUVOREXANT
     Indication: INSOMNIA
     Dosage: 20 MG, QD, (7 TABLETS WERE ADMINISTERED FROM AFTER THE GOLDEN WEEK HOLIDAYS)
     Route: 048
     Dates: start: 201505

REACTIONS (1)
  - Completed suicide [Fatal]

NARRATIVE: CASE EVENT DATE: 20150515
